FAERS Safety Report 5558774-2 (Version None)
Quarter: 2007Q4

REPORT INFORMATION
  Report Type: 
  Country: None (occurrence: None)
  Receive Date: 20071130
  Receipt Date: 20070819
  Transmission Date: 20080405
  Serious: No
  Sender: FDA-Public Use
  Company Number: US200708003967

PATIENT
  Age: 69 Year
  Sex: Female
  Weight: 113.4 kg

DRUGS (4)
  1. BYETTA [Suspect]
     Indication: TYPE 2 DIABETES MELLITUS
     Dosage: 5 UG, 2/D, SUBCUTANEOUS, 10 UG, 2/D, SUBCUTANEOUS
     Route: 058
     Dates: start: 20070601, end: 20070701
  2. BYETTA [Suspect]
     Indication: TYPE 2 DIABETES MELLITUS
     Dosage: 5 UG, 2/D, SUBCUTANEOUS, 10 UG, 2/D, SUBCUTANEOUS
     Route: 058
     Dates: start: 20070817, end: 20070818
  3. GLIPIZIDE [Concomitant]
  4. SOLATOL (SOTALOL HYDROCHLORIDE) [Concomitant]

REACTIONS (6)
  - ABDOMINAL PAIN [None]
  - DIZZINESS [None]
  - FLATULENCE [None]
  - HEADACHE [None]
  - HEART RATE INCREASED [None]
  - NAUSEA [None]
